FAERS Safety Report 12951015 (Version 1)
Quarter: 2016Q4

REPORT INFORMATION
  Report Type: Other
  Country: GB (occurrence: GB)
  Receive Date: 20161117
  Receipt Date: 20161117
  Transmission Date: 20170207
  Serious: Yes (Other)
  Sender: FDA-Public Use
  Company Number: GB-LHC-2014066

PATIENT
  Sex: Female

DRUGS (2)
  1. GCE COMBILITE VALVE OXYGEN [Suspect]
     Active Substance: OXYGEN
  2. GCE COMBILITE VALVE OXYGEN [Suspect]
     Active Substance: OXYGEN

REACTIONS (4)
  - Device issue [None]
  - Accident [None]
  - Scratch [None]
  - Injury associated with device [None]

NARRATIVE: CASE EVENT DATE: 20140625
